FAERS Safety Report 5412464-5 (Version None)
Quarter: 2007Q3

REPORT INFORMATION
  Report Type: 
  Country: None (occurrence: None)
  Receive Date: 20070713
  Receipt Date: 20070503
  Transmission Date: 20080115
  Serious: Yes (Hospitalization)
  Sender: FDA-Public Use
  Company Number: US-JNJFOC-20061000728

PATIENT
  Age: 52 Year
  Sex: Female
  Weight: 64.4108 kg

DRUGS (6)
  1. ORTHO EVRA [Suspect]
     Indication: CONTRACEPTION
     Dosage: PATCH FIRST DISPENSED ON 23-AUG-2004 AND DISPENSED REGULARLY UNTIL LAST DATE OF 1-AUG-2005
     Dates: start: 20040801, end: 20050824
  2. ORTHO EVRA [Suspect]
     Indication: MENSTRUATION IRREGULAR
     Dosage: PATCH FIRST DISPENSED ON 23-AUG-2004 AND DISPENSED REGULARLY UNTIL LAST DATE OF 1-AUG-2005
     Dates: start: 20040801, end: 20050824
  3. ASPIRIN [Concomitant]
  4. VICODIN [Concomitant]
  5. SYNTHROID [Concomitant]
  6. ALREX (LOTEPREDNOL ETABONATE) [Concomitant]

REACTIONS (3)
  - METRORRHAGIA [None]
  - PULMONARY EMBOLISM [None]
  - WEIGHT DECREASED [None]
